FAERS Safety Report 8431686-2 (Version None)
Quarter: 2012Q2

REPORT INFORMATION
  Report Type: 
  Country: None (occurrence: None)
  Receive Date: 20120607
  Receipt Date: 20120607
  Transmission Date: 20120825
  Serious: Yes (Other)
  Sender: FDA-Public Use
  Company Number: None

PATIENT
  Sex: Male

DRUGS (2)
  1. PAROXETINE [Suspect]
     Indication: DEPRESSION
     Dosage: 30MG QD PO
     Route: 048
  2. PAROXETINE [Suspect]
     Indication: ANXIETY
     Dosage: 30MG QD PO
     Route: 048

REACTIONS (6)
  - DISEASE RECURRENCE [None]
  - PRODUCT SUBSTITUTION ISSUE [None]
  - DEPRESSION [None]
  - HEADACHE [None]
  - ANXIETY [None]
  - NAUSEA [None]
